FAERS Safety Report 8918832 (Version 1)
Quarter: 2012Q4

REPORT INFORMATION
  Report Type: Spontaneous
  Country: US (occurrence: None)
  Receive Date: 20121115
  Receipt Date: 20121115
  Transmission Date: 20130627
  Serious: Yes (Hospitalization)
  Sender: FDA-Public Use
  Company Number: None

PATIENT
  Age: 52 Year
  Sex: Female
  Weight: 71 kg

DRUGS (31)
  1. AMITRIPTYLINE [Suspect]
  2. VENLAFAXINE [Suspect]
  3. BUPROPION [Suspect]
  4. IBUPROFEN [Concomitant]
  5. MONTELUKAST [Concomitant]
  6. PROMETHAZINE [Concomitant]
  7. HYDROCODONE [Concomitant]
  8. ACETAMINOPHEN [Concomitant]
  9. METFORMIN [Concomitant]
  10. TOPIRAMATE [Concomitant]
  11. RANITIDINE [Concomitant]
  12. PANTANASE [Concomitant]
  13. GEMFIBROZIL [Concomitant]
  14. FLUTICASONE [Concomitant]
  15. ALBUTEROL [Concomitant]
  16. FISH OIL [Concomitant]
  17. CETIRIZINE [Concomitant]
  18. TIZANIDINE [Concomitant]
  19. LIDOCAINE PATCHES [Concomitant]
  20. CALCIUM [Concomitant]
  21. BUTALBITAL [Concomitant]
  22. CAFFEINE [Concomitant]
  23. EZETIMIBE AND SIMVASTATIN [Concomitant]
  24. CAPSAICIN TOPICAL [Concomitant]
  25. PROPRANOLOL [Concomitant]
  26. VENLAFAXINE [Concomitant]
  27. BUPROPION [Concomitant]
  28. AMITRIPTYLINE [Concomitant]
  29. PRENATAL VITAMINS [Concomitant]
  30. VITAMIN D3 [Concomitant]
  31. GABAPENTIN [Concomitant]

REACTIONS (4)
  - Urinary incontinence [None]
  - Tremor [None]
  - Foaming at mouth [None]
  - Confusional state [None]
